FAERS Safety Report 5726967-7 (Version None)
Quarter: 2008Q2

REPORT INFORMATION
  Report Type: 
  Country: None (occurrence: None)
  Receive Date: 20080501
  Receipt Date: 20070801
  Transmission Date: 20081010
  Serious: Yes (Other)
  Sender: FDA-Public Use
  Company Number: PHEH2007US05954

PATIENT
  Age: 44 Year
  Sex: Male

DRUGS (1)
  1. DIOVAN HCT [Suspect]
     Indication: HYPERTENSION
     Dosage: 160MG VAL/25MG HCT, QD, ORAL
     Route: 048
     Dates: start: 20040513, end: 20061211

REACTIONS (8)
  - BLOOD PRESSURE DECREASED [None]
  - BLOOD PRESSURE INCREASED [None]
  - HEADACHE [None]
  - PALLOR [None]
  - PARAESTHESIA [None]
  - PULSE PRESSURE DECREASED [None]
  - SYNCOPE VASOVAGAL [None]
  - VISION BLURRED [None]
